FAERS Safety Report 7334900-X (Version None)
Quarter: 2011Q1

REPORT INFORMATION
  Report Type: 
  Country: None (occurrence: None)
  Receive Date: 20110307
  Receipt Date: 20110223
  Transmission Date: 20110831
  Serious: Yes (Hospitalization, Other)
  Sender: FDA-Public Use
  Company Number: BR-SANOFI-AVENTIS-2011SA011945

PATIENT
  Age: 26 Year
  Sex: Male
  Weight: 94 kg

DRUGS (3)
  1. INSULIN ASPART [Concomitant]
     Dosage: ACCORDING TO GLYCEMIA
     Route: 058
  2. OPTIPEN [Suspect]
     Route: 058
  3. LANTUS [Suspect]
     Route: 058

REACTIONS (4)
  - URINARY TRACT INFECTION [None]
  - VOMITING [None]
  - HYPERGLYCAEMIA [None]
  - DIABETIC KETOACIDOSIS [None]
